FAERS Safety Report 24564021 (Version 6)
Quarter: 2025Q2

REPORT INFORMATION
  Report Type: Report from Study
  Country: US (occurrence: US)
  Receive Date: 20241030
  Receipt Date: 20250603
  Transmission Date: 20250717
  Serious: Yes (Hospitalization, Other)
  Sender: ABBVIE
  Company Number: US-ABBVIE-5982318

PATIENT
  Age: 72 Year
  Sex: Female
  Weight: 61.234 kg

DRUGS (4)
  1. RINVOQ [Suspect]
     Active Substance: UPADACITINIB
     Indication: Rheumatoid arthritis
     Dosage: FORM STRENGTH: 15 MILLIGRAM
     Route: 048
     Dates: start: 20220501
  2. RINVOQ [Suspect]
     Active Substance: UPADACITINIB
     Indication: Rheumatoid arthritis
     Route: 048
  3. CALCIUM [Concomitant]
     Active Substance: CALCIUM
     Indication: Product used for unknown indication
  4. VITAMIN D [Concomitant]
     Active Substance: VITAMIN D NOS
     Indication: Product used for unknown indication

REACTIONS (11)
  - Hip fracture [Recovering/Resolving]
  - Femoral neck fracture [Recovered/Resolved]
  - Fall [Recovering/Resolving]
  - Neck pain [Not Recovered/Not Resolved]
  - Osteopenia [Unknown]
  - Knee operation [Unknown]
  - Knee arthroplasty [Unknown]
  - Intervertebral disc degeneration [Unknown]
  - Impaired fasting glucose [Unknown]
  - Pain in extremity [Unknown]
  - Abdominal pain upper [Recovered/Resolved]

NARRATIVE: CASE EVENT DATE: 20221108
